FAERS Safety Report 17718871 (Version 1)
Quarter: 2020Q2

REPORT INFORMATION
  Report Type: Report from Study
  Country: US (occurrence: US)
  Receive Date: 20200428
  Receipt Date: 20200428
  Transmission Date: 20200714
  Serious: Yes (Death)
  Sender: FDA-Public Use
  Company Number: US-BAYER-2020-069316

PATIENT
  Age: 71 Year
  Sex: Female
  Weight: 70.3 kg

DRUGS (3)
  1. UPTRAVI [Concomitant]
     Active Substance: SELEXIPAG
  2. ADEMPAS [Suspect]
     Active Substance: RIOCIGUAT
     Indication: PULMONARY ARTERIAL HYPERTENSION
     Dosage: 2.5 MG, TID
     Route: 048
  3. ADEMPAS [Suspect]
     Active Substance: RIOCIGUAT
     Indication: PULMONARY ARTERIAL HYPERTENSION
     Dosage: UNK
     Route: 048
     Dates: start: 20160413

REACTIONS (1)
  - Death [Fatal]

NARRATIVE: CASE EVENT DATE: 20200405
